FAERS Safety Report 20068996 (Version 1)
Quarter: 2021Q4

REPORT INFORMATION
  Report Type: Report from Study
  Country: NL (occurrence: NL)
  Receive Date: 20211115
  Receipt Date: 20211115
  Transmission Date: 20220303
  Serious: Yes (Hospitalization)
  Sender: FDA-Public Use
  Company Number: NL-AMGEN-NLDNI2021175925

PATIENT
  Age: 60 Year
  Sex: Female
  Weight: 57 kg

DRUGS (3)
  1. TRASTUZUMAB [Suspect]
     Active Substance: TRASTUZUMAB
     Indication: Breast cancer
     Dosage: 450 MILLIGRAM
     Route: 042
     Dates: start: 20191028
  2. PERTUZUMAB [Concomitant]
     Active Substance: PERTUZUMAB
     Dosage: 600 MILLIGRAM
     Dates: start: 20191028
  3. DOCETAXEL [Concomitant]
     Active Substance: DOCETAXEL
     Dosage: 120 MILLIGRAM
     Dates: start: 20191028

REACTIONS (1)
  - Amnesia [Recovered/Resolved]

NARRATIVE: CASE EVENT DATE: 20200606
